FAERS Safety Report 7751693-2 (Version None)
Quarter: 2011Q3

REPORT INFORMATION
  Report Type: 
  Country: None (occurrence: None)
  Receive Date: 20110915
  Receipt Date: 20110901
  Transmission Date: 20111222
  Serious: Yes (Hospitalization, Other)
  Sender: FDA-Public Use
  Company Number: JP-AMGEN-JPNSP2011043579

PATIENT
  Age: 70 Year
  Sex: Female
  Weight: 65.5 kg

DRUGS (14)
  1. RIMATIL [Concomitant]
     Indication: RHEUMATOID ARTHRITIS
     Dosage: 100 MG, 3X/DAY
     Route: 048
     Dates: start: 20060516
  2. PREDNISOLONE [Concomitant]
     Indication: RHEUMATOID ARTHRITIS
     Dosage: UNK
     Route: 048
     Dates: start: 20060314
  3. SINGULAIR [Concomitant]
     Indication: ASTHMA
     Dosage: 10 MG, 1X/DAY
     Route: 048
     Dates: start: 20051229
  4. ENBREL [Suspect]
     Indication: RHEUMATOID ARTHRITIS
     Dosage: 25 MG, WEEKLY
     Route: 058
     Dates: start: 20110118, end: 20110118
  5. SHIOSOL [Concomitant]
     Indication: RHEUMATOID ARTHRITIS
     Dosage: 10 MG, UNK
     Route: 030
     Dates: start: 20050125, end: 20110111
  6. D ALFA [Concomitant]
     Indication: OSTEOPOROSIS
     Dosage: 1 UG, 1X/DAY
     Route: 048
     Dates: start: 20060221
  7. LOXONIN [Concomitant]
     Indication: RHEUMATOID ARTHRITIS
     Dosage: 60 MG, 3X/DAY
     Route: 048
     Dates: start: 20080428
  8. MUCODYNE [Concomitant]
     Indication: ASTHMA
     Dosage: 50 MG, 3X/DAY
     Route: 048
     Dates: start: 20051229
  9. METHYCOBAL [Concomitant]
     Indication: NEUROPATHY PERIPHERAL
     Dosage: 500 UG, 3X/DAY
     Route: 048
     Dates: start: 20060502
  10. DAI MEDINE [Concomitant]
     Indication: HYPOVITAMINOSIS
     Dosage: UNK
     Route: 048
     Dates: start: 20090211, end: 20110711
  11. KETOPROFEN [Concomitant]
     Indication: ASTHMA
     Dosage: UNK
     Route: 062
     Dates: start: 20100713
  12. PRORNER [Concomitant]
     Indication: RHEUMATOID ARTHRITIS
     Dosage: 20 UG, 3X/DAY
     Route: 048
     Dates: start: 20091229
  13. MS HOT PACK [Concomitant]
     Indication: RHEUMATOID ARTHRITIS
     Dosage: UNK
     Route: 062
     Dates: start: 20060725
  14. SEVEN EP [Concomitant]
     Indication: GASTRITIS
     Dosage: UNK
     Route: 048
     Dates: start: 20070710

REACTIONS (2)
  - EOSINOPHILIC PNEUMONIA [None]
  - RHEUMATOID ARTHRITIS [None]
